FAERS Safety Report 22658329 (Version 1)
Quarter: 2023Q2

REPORT INFORMATION
  Report Type: Spontaneous
  Country: FR (occurrence: FR)
  Receive Date: 20230630
  Receipt Date: 20230630
  Transmission Date: 20230722
  Serious: Yes (Hospitalization, Other)
  Sender: FDA-Public Use
  Company Number: None

PATIENT

DRUGS (1)
  1. IBUPROFEN [Suspect]
     Active Substance: IBUPROFEN
     Indication: Antiinflammatory therapy
     Dosage: 400 MG (200MG 2 TIMES A DAY)
     Route: 048
     Dates: start: 20230511, end: 20230514

REACTIONS (2)
  - Necrotising fasciitis [Not Recovered/Not Resolved]
  - Septic arthritis streptococcal [Not Recovered/Not Resolved]

NARRATIVE: CASE EVENT DATE: 20230514
